FAERS Safety Report 7758490-2 (Version None)
Quarter: 2011Q3

REPORT INFORMATION
  Report Type: 
  Country: None (occurrence: None)
  Receive Date: 20110914
  Receipt Date: 20110902
  Transmission Date: 20111222
  Serious: Yes (Other)
  Sender: FDA-Public Use
  Company Number: 2011SP042066

PATIENT
  Sex: Female

DRUGS (3)
  1. PEG-INTRON [Suspect]
     Indication: HEPATITIS C
     Dates: start: 20110702, end: 20110826
  2. RIBAVIRIN [Suspect]
     Indication: HEPATITIS C
     Dates: start: 20110703, end: 20110826
  3. TELAPREVIR [Suspect]
     Indication: HEPATITIS C
     Dates: start: 20110703, end: 20110826

REACTIONS (10)
  - MIGRAINE [None]
  - DYSPHAGIA [None]
  - PHOTOPSIA [None]
  - CONDITION AGGRAVATED [None]
  - WHITE BLOOD CELL COUNT DECREASED [None]
  - BLISTER [None]
  - PHARYNGEAL OEDEMA [None]
  - EYE HAEMORRHAGE [None]
  - SWOLLEN TONGUE [None]
  - SYSTEMIC LUPUS ERYTHEMATOSUS [None]
